FAERS Safety Report 19409969 (Version 3)
Quarter: 2021Q3

REPORT INFORMATION
  Report Type: Spontaneous
  Country: US (occurrence: US)
  Receive Date: 20210614
  Receipt Date: 20210917
  Transmission Date: 20211014
  Serious: Yes (Hospitalization, Other)
  Sender: FDA-Public Use
  Company Number: US-SA-2021SA193972

PATIENT
  Age: 64 Year
  Sex: Female
  Weight: 103.8 kg

DRUGS (65)
  1. DUPIXENT [Suspect]
     Active Substance: DUPILUMAB
     Indication: IMMUNODEFICIENCY
  2. DIPHENHYDRAMINE. [Concomitant]
     Active Substance: DIPHENHYDRAMINE
  3. MELOXICAM. [Concomitant]
     Active Substance: MELOXICAM
  4. BUPROPION HCL [Concomitant]
     Active Substance: BUPROPION HYDROCHLORIDE
  5. NYSTATIN. [Concomitant]
     Active Substance: NYSTATIN
  6. TIZANIDINE HCL [Concomitant]
     Active Substance: TIZANIDINE HYDROCHLORIDE
  7. TIZANIDINE HCL [Concomitant]
     Active Substance: TIZANIDINE HYDROCHLORIDE
  8. CLONIDINE HCL [Concomitant]
     Active Substance: CLONIDINE HYDROCHLORIDE
  9. SYNTHROID [Concomitant]
     Active Substance: LEVOTHYROXINE SODIUM
  10. PROBIOTIC 10 [Concomitant]
     Active Substance: DIETARY SUPPLEMENT\PROBIOTICS
  11. PROBIOTIC 10 [Concomitant]
     Active Substance: DIETARY SUPPLEMENT\PROBIOTICS
  12. EPINEPHRINE. [Concomitant]
     Active Substance: EPINEPHRINE
     Dosage: AUTO?INJECTOR
  13. CALCIUM;MAGNESIUM;VITAMIN D NOS;ZINC [Concomitant]
  14. METOPROLOL TARTRATE. [Concomitant]
     Active Substance: METOPROLOL TARTRATE
  15. VITAMIN D2 [Concomitant]
     Active Substance: ERGOCALCIFEROL
  16. FERROUS SULFATE. [Concomitant]
     Active Substance: FERROUS SULFATE
  17. PERCOCET [Concomitant]
     Active Substance: ACETAMINOPHEN\OXYCODONE HYDROCHLORIDE
  18. ADVAIR HFA [Concomitant]
     Active Substance: FLUTICASONE PROPIONATE\SALMETEROL XINAFOATE
  19. DOXYCYCLINE HYCLATE. [Concomitant]
     Active Substance: DOXYCYCLINE HYCLATE
  20. QUETIAPINE FUMARATE. [Concomitant]
     Active Substance: QUETIAPINE FUMARATE
  21. METOPROLOL TARTRATE. [Concomitant]
     Active Substance: METOPROLOL TARTRATE
     Indication: ACUTE CORONARY SYNDROME
  22. ALPRAZOLAM. [Concomitant]
     Active Substance: ALPRAZOLAM
  23. BUPROPION HCL [Concomitant]
     Active Substance: BUPROPION HYDROCHLORIDE
  24. CONCERTA [Concomitant]
     Active Substance: METHYLPHENIDATE HYDROCHLORIDE
  25. POTASSIUM CHLORIDE. [Concomitant]
     Active Substance: POTASSIUM CHLORIDE
  26. THEOPHYLLINE [Concomitant]
     Active Substance: THEOPHYLLINE ANHYDROUS
     Dosage: 400 MG TAB ER 24H
  27. SYNTHROID [Concomitant]
     Active Substance: LEVOTHYROXINE SODIUM
  28. VITAMIN E NOS [Concomitant]
     Active Substance: .ALPHA.-TOCOPHEROL
  29. ACETAMINOPHEN. [Concomitant]
     Active Substance: ACETAMINOPHEN
  30. PREDNISONE. [Concomitant]
     Active Substance: PREDNISONE
  31. VITAMIN D2 [Concomitant]
     Active Substance: ERGOCALCIFEROL
  32. CONCERTA [Concomitant]
     Active Substance: METHYLPHENIDATE HYDROCHLORIDE
     Dosage: ER 24
  33. SPIRIVA [Concomitant]
     Active Substance: TIOTROPIUM BROMIDE MONOHYDRATE
  34. PRENATAL MULTIVITAMIN + DHA [Concomitant]
  35. DUPIXENT [Suspect]
     Active Substance: DUPILUMAB
     Indication: CONGENITAL HYPOGAMMAGLOBULINAEMIA
     Dosage: 300 MG, QOW
     Route: 058
  36. DUPIXENT [Suspect]
     Active Substance: DUPILUMAB
     Indication: ASTHMA
  37. LIDOCAINE. [Concomitant]
     Active Substance: LIDOCAINE
  38. PREDNISONE. [Concomitant]
     Active Substance: PREDNISONE
  39. NYSTATIN. [Concomitant]
     Active Substance: NYSTATIN
  40. EPINEPHRINE [EPINEPHRINE BITARTRATE] [Concomitant]
  41. DUPIXENT [Suspect]
     Active Substance: DUPILUMAB
     Indication: CHRONIC OBSTRUCTIVE PULMONARY DISEASE
  42. LIDOCAINE. [Concomitant]
     Active Substance: LIDOCAINE
  43. CUVITRU [Concomitant]
     Active Substance: HUMAN IMMUNOGLOBULIN G
  44. FISH OIL [Concomitant]
     Active Substance: FISH OIL
  45. ALPRAZOLAM. [Concomitant]
     Active Substance: ALPRAZOLAM
  46. MELOXICAM. [Concomitant]
     Active Substance: MELOXICAM
  47. LASIX [Concomitant]
     Active Substance: FUROSEMIDE
  48. FERROUS SULFATE. [Concomitant]
     Active Substance: FERROUS SULFATE
  49. VITAMIN C [Concomitant]
     Active Substance: ASCORBIC ACID
  50. DIPHENHYDRAMINE. [Concomitant]
     Active Substance: DIPHENHYDRAMINE
  51. CUVITRU [Concomitant]
     Active Substance: HUMAN IMMUNOGLOBULIN G
  52. FISH OIL [Concomitant]
     Active Substance: FISH OIL
  53. PERCOCET [Concomitant]
     Active Substance: ACETAMINOPHEN\OXYCODONE HYDROCHLORIDE
  54. DALIRESP [Concomitant]
     Active Substance: ROFLUMILAST
  55. CLONIDINE HCL [Concomitant]
     Active Substance: CLONIDINE HYDROCHLORIDE
  56. ADVAIR HFA [Concomitant]
     Active Substance: FLUTICASONE PROPIONATE\SALMETEROL XINAFOATE
     Dosage: 2 MG
  57. DOXYCYCLINE HYCLATE. [Concomitant]
     Active Substance: DOXYCYCLINE HYCLATE
  58. ACETAMINOPHEN. [Concomitant]
     Active Substance: ACETAMINOPHEN
  59. QUETIAPINE FUMARATE. [Concomitant]
     Active Substance: QUETIAPINE FUMARATE
  60. SPIRIVA [Concomitant]
     Active Substance: TIOTROPIUM BROMIDE MONOHYDRATE
  61. POTASSIUM CHLORIDE. [Concomitant]
     Active Substance: POTASSIUM CHLORIDE
  62. DALIRESP [Concomitant]
     Active Substance: ROFLUMILAST
  63. VITAMIN C [Concomitant]
     Active Substance: ASCORBIC ACID
  64. CALCIUM;COLECALCIFEROL;MAGNESIUM;MENAQUINONE;ZINC [Concomitant]
  65. LASIX [Concomitant]
     Active Substance: FUROSEMIDE

REACTIONS (6)
  - Urosepsis [Unknown]
  - Incorrect dose administered [Unknown]
  - Spinal fusion surgery [Recovering/Resolving]
  - Product use in unapproved indication [Unknown]
  - Fatigue [Unknown]
  - Malaise [Unknown]

NARRATIVE: CASE EVENT DATE: 20210526
